FAERS Safety Report 24217445 (Version 1)
Quarter: 2024Q3

REPORT INFORMATION
  Report Type: Other
  Country: US (occurrence: US)
  Receive Date: 20240816
  Receipt Date: 20240816
  Transmission Date: 20241016
  Serious: Yes (Hospitalization, Other)
  Sender: BIONPHARMA
  Company Number: US-Bion-013673

PATIENT
  Age: 41 Year
  Sex: Female

DRUGS (1)
  1. BENZONATATE [Suspect]
     Active Substance: BENZONATATE
     Indication: Product used for unknown indication
     Dosage: 30 PILLS

REACTIONS (6)
  - Acidosis [Unknown]
  - Electrocardiogram QRS complex prolonged [Recovered/Resolved]
  - Sinus tachycardia [Unknown]
  - Seizure [Unknown]
  - Cardiac arrest [Recovering/Resolving]
  - Intentional overdose [Unknown]
